FAERS Safety Report 4359259-1 (Version None)
Quarter: 2004Q2

REPORT INFORMATION
  Report Type: 
  Country: None (occurrence: None)
  Receive Date: 20040512
  Receipt Date: 20040422
  Transmission Date: 20050107
  Serious: Yes (Hospitalization, Other)
  Sender: FDA-Public Use
  Company Number: USA040464492

PATIENT
  Age: 75 Year
  Sex: Male

DRUGS (4)
  1. SYMBYAX [Suspect]
     Indication: ANXIETY
     Dosage: 1 DSG FORM/1 DAY
     Dates: start: 20040301, end: 20040101
  2. SYMBYAX [Suspect]
     Indication: DEPRESSION
     Dosage: 1 DSG FORM/1 DAY
     Dates: start: 20040301, end: 20040101
  3. CELEXA [Concomitant]
  4. ZOCOR [Concomitant]

REACTIONS (3)
  - BLOOD PRESSURE SYSTOLIC INCREASED [None]
  - CEREBROVASCULAR ACCIDENT [None]
  - OEDEMA PERIPHERAL [None]
